FAERS Safety Report 5234213-6 (Version None)
Quarter: 2007Q1

REPORT INFORMATION
  Report Type: 
  Country: None (occurrence: None)
  Receive Date: 20070209
  Receipt Date: 20070129
  Transmission Date: 20070707
  Serious: Yes (Other)
  Sender: FDA-Public Use
  Company Number: CZ-JNJFOC-20070107267

PATIENT
  Sex: Female

DRUGS (4)
  1. INFLIXIMAB [Suspect]
     Indication: RHEUMATOID ARTHRITIS
     Route: 042
  2. PIROXICAM [Concomitant]
     Route: 048
  3. MTX [Concomitant]
     Route: 048
  4. ACIDUM FOLICUM [Concomitant]
     Route: 048

REACTIONS (1)
  - PULMONARY TUBERCULOSIS [None]
